FAERS Safety Report 15773674 (Version 1)
Quarter: 2018Q4

REPORT INFORMATION
  Report Type: Report from Study
  Country: None (occurrence: US)
  Receive Date: 20181229
  Receipt Date: 20181229
  Transmission Date: 20190205
  Serious: Yes (Hospitalization, Other)
  Sender: FDA-Public Use
  Company Number: US-ABBVIE-18S-163-2603101-00

PATIENT
  Age: 73 Year
  Sex: Male

DRUGS (1)
  1. CREON [Suspect]
     Active Substance: PANCRELIPASE AMYLASE\PANCRELIPASE LIPASE\PANCRELIPASE PROTEASE
     Indication: PRODUCT USED FOR UNKNOWN INDICATION
     Route: 048

REACTIONS (31)
  - Decubitus ulcer [Recovering/Resolving]
  - Abdominal abscess [Unknown]
  - Abdominal hernia [Unknown]
  - Phlebitis [Unknown]
  - Hyperparathyroidism secondary [Unknown]
  - Nausea [Unknown]
  - Back pain [Unknown]
  - Decubitus ulcer [Unknown]
  - Adrenal gland cancer [Unknown]
  - Discharge [Unknown]
  - Tenderness [Unknown]
  - Oedema peripheral [Unknown]
  - Flatulence [Unknown]
  - Renal mass [Unknown]
  - Renal cancer [Unknown]
  - Musculoskeletal stiffness [Unknown]
  - Renal cyst [Unknown]
  - Constipation [Unknown]
  - Pain [Unknown]
  - Fatigue [Unknown]
  - Malabsorption [Unknown]
  - Chronic kidney disease [Unknown]
  - Diarrhoea [Unknown]
  - Myocardial infarction [Unknown]
  - Adenocarcinoma pancreas [Unknown]
  - Benign prostatic hyperplasia [Unknown]
  - Diverticulum [Unknown]
  - Device dislocation [Unknown]
  - Pyrexia [Unknown]
  - Eructation [Unknown]
  - Haemorrhoids [Unknown]

NARRATIVE: CASE EVENT DATE: 2017
